FAERS Safety Report 6169233-0 (Version None)
Quarter: 2009Q2

REPORT INFORMATION
  Report Type: 
  Country: None (occurrence: None)
  Receive Date: 20090424
  Receipt Date: 20090417
  Transmission Date: 20091009
  Serious: Yes (Death, Hospitalization)
  Sender: FDA-Public Use
  Company Number: 192341USA

PATIENT
  Age: 21 Year
  Sex: Female

DRUGS (1)
  1. NORDETTE-28 [Suspect]

REACTIONS (7)
  - BRAIN HERNIATION [None]
  - CEREBRAL INFARCTION [None]
  - DIARRHOEA [None]
  - DIZZINESS [None]
  - HYPOAESTHESIA [None]
  - PYREXIA [None]
  - SUPERIOR SAGITTAL SINUS THROMBOSIS [None]
